FAERS Safety Report 22014887 (Version 1)
Quarter: 2023Q1

REPORT INFORMATION
  Report Type: Spontaneous
  Country: FR (occurrence: FR)
  Receive Date: 20230221
  Receipt Date: 20230221
  Transmission Date: 20230417
  Serious: Yes (Death)
  Sender: FDA-Public Use
  Company Number: None

PATIENT
  Age: 86 Year
  Sex: Male
  Weight: 75 kg

DRUGS (2)
  1. OBINUTUZUMAB [Suspect]
     Active Substance: OBINUTUZUMAB
     Indication: Chronic lymphocytic leukaemia
     Dosage: C1J1: 100 MG. DEBIT: 25 MG/H
     Route: 065
     Dates: start: 20221121, end: 20221121
  2. OBINUTUZUMAB [Suspect]
     Active Substance: OBINUTUZUMAB
     Dosage: C1J2. DEBIT: 25 MG/H
     Route: 065
     Dates: start: 20221122, end: 20221122

REACTIONS (2)
  - Acute respiratory distress syndrome [Fatal]
  - Infusion related reaction [Fatal]

NARRATIVE: CASE EVENT DATE: 20221121
